FAERS Safety Report 23649936 (Version 1)
Quarter: 2024Q1

REPORT INFORMATION
  Report Type: Spontaneous
  Country: US (occurrence: None)
  Receive Date: 20240319
  Receipt Date: 20240319
  Transmission Date: 20240409
  Serious: No
  Sender: FDA-Public Use
  Company Number: US-ROCHE-3425784

PATIENT
  Sex: Male
  Weight: 76.998 kg

DRUGS (1)
  1. ERIVEDGE [Suspect]
     Active Substance: VISMODEGIB
     Indication: Basal cell carcinoma
     Route: 048
     Dates: start: 202305

REACTIONS (6)
  - Eye disorder [Not Recovered/Not Resolved]
  - Eye oedema [Not Recovered/Not Resolved]
  - Swelling of eyelid [Unknown]
  - Vision blurred [Unknown]
  - Lacrimation increased [Unknown]
  - Eye irritation [Unknown]
